FAERS Safety Report 22640994 (Version 1)
Quarter: 2023Q2

REPORT INFORMATION
  Report Type: Spontaneous
  Country: US (occurrence: None)
  Receive Date: 20230623
  Receipt Date: 20230623
  Transmission Date: 20230721
  Serious: Yes (Death)
  Sender: FDA-Public Use
  Company Number: None

PATIENT
  Age: 42 Year
  Sex: Male
  Weight: 81 kg

DRUGS (16)
  1. GENVOYA [Suspect]
     Active Substance: COBICISTAT\ELVITEGRAVIR\EMTRICITABINE\TENOFOVIR ALAFENAMIDE FUMARATE
     Indication: HIV infection
     Dosage: FREQUENCY : DAILY;?
     Route: 048
  2. ACETAMINOPHEN/COD [Concomitant]
  3. CEPHALEXIN [Concomitant]
     Active Substance: CEPHALEXIN
  4. CLOBAZAM [Concomitant]
     Active Substance: CLOBAZAM
  5. COVID 19 MODERNA BIVALENT [Concomitant]
  6. FLUCELVAX PFS [Concomitant]
  7. GABAPENTIN [Concomitant]
     Active Substance: GABAPENTIN
  8. GENVOYA [Concomitant]
     Active Substance: COBICISTAT\ELVITEGRAVIR\EMTRICITABINE\TENOFOVIR ALAFENAMIDE FUMARATE
  9. LEVETIRACETAM [Concomitant]
     Active Substance: LEVETIRACETAM
  10. NAPROXEN [Concomitant]
     Active Substance: NAPROXEN
  11. ONDANSETRON [Concomitant]
     Active Substance: ONDANSETRON
  12. ACETAMINOPHEN\OXYCODONE HYDROCHLORIDE [Concomitant]
     Active Substance: ACETAMINOPHEN\OXYCODONE HYDROCHLORIDE
  13. TEMOZOLOMIDE [Concomitant]
     Active Substance: TEMOZOLOMIDE
  14. TRAMADOL [Concomitant]
     Active Substance: TRAMADOL
  15. TRIAMCINOLONE [Concomitant]
     Active Substance: TRIAMCINOLONE
  16. BEVACIZUMAB [Concomitant]
     Active Substance: BEVACIZUMAB

REACTIONS (1)
  - Death [None]
